FAERS Safety Report 9599913 (Version 1)
Quarter: 2013Q4

REPORT INFORMATION
  Report Type: Spontaneous
  Country: US (occurrence: US)
  Receive Date: 20131004
  Receipt Date: 20131004
  Transmission Date: 20140711
  Serious: No
  Sender: FDA-Public Use
  Company Number: US-AMGEN-USASP2013031469

PATIENT
  Age: 49 Year
  Sex: Female

DRUGS (16)
  1. ENBREL [Suspect]
     Indication: PRODUCT USED FOR UNKNOWN INDICATION
     Dosage: 50 MG, ONCE A WEEK
     Route: 058
  2. VITAMIN D                          /00107901/ [Concomitant]
     Dosage: 1000 UNIT, UNK
  3. BIOTIN [Concomitant]
     Dosage: 5000 UNK, UNK
  4. GABAPENTIN [Concomitant]
     Dosage: 300 MG, UNK
  5. PLAQUENIL                          /00072602/ [Concomitant]
     Dosage: 200 MG, UNK
  6. OMEPRAZOLE [Concomitant]
     Dosage: 10 MG, UNK
  7. ATENOLOL [Concomitant]
     Dosage: 100 MG, UNK
  8. FLONASE [Concomitant]
     Dosage: UNK, UNK, 0.05%
  9. CLONAZEPAM [Concomitant]
     Dosage: 0.5 MG, UNK
  10. TRAMADOL HCL [Concomitant]
     Dosage: 50 MG, UNK
  11. PREDNISONE [Concomitant]
     Dosage: 1 MG, UNK
  12. ETODOLAC [Concomitant]
     Dosage: 200 MG, UNK
  13. NUVARING [Concomitant]
     Dosage: UNK
  14. FAMVIR                             /01226201/ [Concomitant]
     Dosage: 125 MG, UNK
  15. ZOFRAN                             /00955301/ [Concomitant]
     Dosage: 4 MG, UNK
  16. CYCLOBENZAPRINE [Concomitant]
     Dosage: 5 MG, UNK

REACTIONS (1)
  - Headache [Unknown]
